FAERS Safety Report 7421299-3 (Version None)
Quarter: 2011Q2

REPORT INFORMATION
  Report Type: 
  Country: None (occurrence: None)
  Receive Date: 20110418
  Receipt Date: 20110411
  Transmission Date: 20111010
  Serious: Yes (Hospitalization)
  Sender: FDA-Public Use
  Company Number: FR-MERCK-1104FRA00068

PATIENT
  Age: 21 Year
  Sex: Female
  Weight: 61 kg

DRUGS (3)
  1. JANUMET [Suspect]
     Indication: DIABETES MELLITUS
     Route: 048
     Dates: start: 20110117, end: 20110101
  2. JANUMET [Suspect]
     Route: 048
     Dates: start: 20110217, end: 20110219
  3. METFORMIN [Concomitant]
     Indication: DIABETES MELLITUS
     Route: 048
     Dates: end: 20110116

REACTIONS (3)
  - VERTIGO [None]
  - HEADACHE [None]
  - ABDOMINAL PAIN [None]
